FAERS Safety Report 6366432-X (Version None)
Quarter: 2009Q3

REPORT INFORMATION
  Report Type: 
  Country: None (occurrence: None)
  Receive Date: 20090921
  Receipt Date: 20090909
  Transmission Date: 20100115
  Serious: Yes (Other)
  Sender: FDA-Public Use
  Company Number: US-ROCHE-650283

PATIENT
  Sex: Female
  Weight: 77.1 kg

DRUGS (1)
  1. CAPECITABINE [Suspect]
     Indication: BREAST CANCER
     Route: 048

REACTIONS (3)
  - GASTROINTESTINAL TOXICITY [None]
  - ILL-DEFINED DISORDER [None]
  - MALIGNANT NEOPLASM PROGRESSION [None]
